FAERS Safety Report 11115299 (Version 2)
Quarter: 2015Q2

REPORT INFORMATION
  Report Type: Spontaneous
  Country: US (occurrence: US)
  Receive Date: 20150515
  Receipt Date: 20150519
  Transmission Date: 20150821
  Serious: Yes (Hospitalization)
  Sender: FDA-Public Use
  Company Number: US-ROCHE-1577698

PATIENT
  Age: 66 Year
  Sex: Male

DRUGS (2)
  1. 5-FU [Suspect]
     Active Substance: FLUOROURACIL
     Indication: PRODUCT USED FOR UNKNOWN INDICATION
     Route: 065
  2. ERIVEDGE [Suspect]
     Active Substance: VISMODEGIB
     Indication: OESOPHAGEAL ADENOCARCINOMA
     Route: 048
     Dates: start: 20140109, end: 20150101

REACTIONS (6)
  - Asthenia [Recovering/Resolving]
  - Multiple fractures [Recovering/Resolving]
  - Off label use [Unknown]
  - Weight decreased [Recovering/Resolving]
  - Haematoma [Unknown]
  - Dizziness [Recovering/Resolving]

NARRATIVE: CASE EVENT DATE: 20150101
